FAERS Safety Report 6645151-6 (Version None)
Quarter: 2010Q1

REPORT INFORMATION
  Report Type: 
  Country: None (occurrence: None)
  Receive Date: 20100322
  Receipt Date: 20100308
  Transmission Date: 20100710
  Serious: Yes (Other)
  Sender: FDA-Public Use
  Company Number: GB-MYLANLABS-2008S1017825

PATIENT
  Age: 51 Year
  Sex: Male

DRUGS (11)
  1. DIHYDROCODEINE BITARTRATE INJ [Interacting]
     Indication: DRUG USE FOR UNKNOWN INDICATION
  2. FLUOXETINE [Suspect]
     Indication: DEPRESSION
     Route: 048
     Dates: start: 20050210, end: 20080903
  3. OXYCONTIN [Interacting]
     Indication: PAIN
     Route: 048
     Dates: start: 20061016
  4. OXYCODONE HCL [Interacting]
     Indication: PAIN
     Route: 048
     Dates: start: 20061201
  5. CALCICHEW [Concomitant]
     Indication: DRUG USE FOR UNKNOWN INDICATION
  6. ETORICOXIB [Concomitant]
     Indication: DRUG USE FOR UNKNOWN INDICATION
     Dates: start: 20051209
  7. IBANDRONIC ACID [Concomitant]
     Indication: DRUG USE FOR UNKNOWN INDICATION
     Route: 065
     Dates: start: 20060927
  8. ISPAGHULA [Concomitant]
     Indication: DRUG USE FOR UNKNOWN INDICATION
     Route: 065
  9. OMEPRAZOLE [Concomitant]
     Indication: DRUG USE FOR UNKNOWN INDICATION
     Route: 065
  10. PREDNISOLONE [Concomitant]
     Indication: DRUG USE FOR UNKNOWN INDICATION
     Route: 065
  11. SENNA [Concomitant]
     Indication: DRUG USE FOR UNKNOWN INDICATION
     Route: 065

REACTIONS (6)
  - CONSTIPATION [None]
  - DRUG DEPENDENCE [None]
  - DRUG INEFFECTIVE [None]
  - DRUG INTERACTION [None]
  - HYPERHIDROSIS [None]
  - URINARY RETENTION [None]
